FAERS Safety Report 6387328-3 (Version None)
Quarter: 2009Q3

REPORT INFORMATION
  Report Type: 
  Country: None (occurrence: None)
  Receive Date: 20090930
  Receipt Date: 20090825
  Transmission Date: 20100115
  Serious: Yes (Hospitalization)
  Sender: FDA-Public Use
  Company Number: 2009AL001963

PATIENT
  Age: 53 Year
  Sex: Female

DRUGS (96)
  1. DIGOXIN [Suspect]
     Dosage: 0.25MG, DAILY, PO
     Route: 048
     Dates: start: 20000101, end: 20090428
  2. VI-Q-TUSS SYRUP [Concomitant]
  3. LASIX [Concomitant]
  4. COREG [Concomitant]
  5. LANTUS [Concomitant]
  6. DIOVAN [Concomitant]
  7. LIPITOR [Concomitant]
  8. ALLEGRA [Concomitant]
  9. XANAX [Concomitant]
  10. MULTI-VITAMIN [Concomitant]
  11. ASPIRIN [Concomitant]
  12. EFFEXOR [Concomitant]
  13. FLEXERIL [Concomitant]
  14. METANX [Concomitant]
  15. NIACIN [Concomitant]
  16. IBUPROFEN [Concomitant]
  17. ALDACTONE [Concomitant]
  18. COZAAR [Concomitant]
  19. CELEXA [Concomitant]
  20. HUMULIN R [Concomitant]
  21. OPTIVA [Concomitant]
  22. REFRESH [Concomitant]
  23. DIPHEN/ATROP [Concomitant]
  24. HYOSCYAMINE [Concomitant]
  25. CEPHALEXIN [Concomitant]
  26. AMOXICILLIN [Concomitant]
  27. GUAIFENEX [Concomitant]
  28. HYDROCODONE [Concomitant]
  29. HUMALOG [Concomitant]
  30. ACULAR [Concomitant]
  31. CLINDAMYCIN [Concomitant]
  32. MYTUSSIN [Concomitant]
  33. PROLIX [Concomitant]
  34. ZITHROMAX [Concomitant]
  35. NOVOLOG [Concomitant]
  36. ALPRAZOLAM [Concomitant]
  37. HYDROXYZ HCL [Concomitant]
  38. ZYRTEC [Concomitant]
  39. FLAVOXATE HYDROCHLORIDE COATED TAB [Concomitant]
  40. PREMARIN [Concomitant]
  41. LEVAQUIN [Concomitant]
  42. NASONEX [Concomitant]
  43. CLONAZEPAM [Concomitant]
  44. NITROFURANTOIN [Concomitant]
  45. MECLIZINE [Concomitant]
  46. TRIMETHOBENZ [Concomitant]
  47. KETEK [Concomitant]
  48. NITROFUR [Concomitant]
  49. TERCONAZOLE [Concomitant]
  50. CLINDESSE [Concomitant]
  51. METANK [Concomitant]
  52. TRIMETHOPRIM [Concomitant]
  53. PROPO-N/APAP [Concomitant]
  54. ERYTHROMYCIN [Concomitant]
  55. GUIADEX [Concomitant]
  56. CYCLOBENZAPR [Concomitant]
  57. METANX [Concomitant]
  58. PREDNISOLONE [Concomitant]
  59. BACITRACIN [Concomitant]
  60. FLUCONAZOLE [Concomitant]
  61. DOXYCYCL HYC [Concomitant]
  62. PROCHLORPER [Concomitant]
  63. UROXATRAL [Concomitant]
  64. CLARITHROMYCIN [Concomitant]
  65. J-TAN D [Concomitant]
  66. SINGULAIR [Concomitant]
  67. VERAMYST [Concomitant]
  68. NEVANAC [Concomitant]
  69. VIVELLE-DOT [Concomitant]
  70. PROMETRIUM ARMOUR [Concomitant]
  71. LOTREL [Concomitant]
  72. ACULAR [Concomitant]
  73. ACTOS [Concomitant]
  74. VAZOTAN [Concomitant]
  75. PROVENTIL-HFA [Concomitant]
  76. AZOR [Concomitant]
  77. RESTASIS [Concomitant]
  78. DIAMOX SRC [Concomitant]
  79. LOTEMAX [Concomitant]
  80. RISAQUAD [Concomitant]
  81. NITROFUR [Concomitant]
  82. VENLAFAXINE [Concomitant]
  83. EFFEXOR [Concomitant]
  84. METHYLPRED [Concomitant]
  85. CHERATUSSIN [Concomitant]
  86. BENICAR [Concomitant]
  87. FLAVOXATE HYDROCHLORIDE COATED TAB [Concomitant]
  88. ODANSETRON [Concomitant]
  89. TERBINAFINE HCL [Concomitant]
  90. TAMIFLU [Concomitant]
  91. MACRODANTIN [Concomitant]
  92. SPIRONOLACTONE [Concomitant]
  93. CALCIUM [Concomitant]
  94. FLOMAX [Concomitant]
  95. UROXATRAL [Concomitant]
  96. .. [Concomitant]

REACTIONS (57)
  - ABDOMINAL PAIN [None]
  - ANXIETY [None]
  - ASTHENIA [None]
  - BACK PAIN [None]
  - BLINDNESS UNILATERAL [None]
  - BLOOD GLUCOSE DECREASED [None]
  - BLOOD GLUCOSE INCREASED [None]
  - BLOOD PRESSURE DECREASED [None]
  - CAPILLARY DISORDER [None]
  - CARDIAC FAILURE CONGESTIVE [None]
  - CATARACT [None]
  - CORNEAL ABRASION [None]
  - COUGH [None]
  - CULTURE URINE POSITIVE [None]
  - DEHYDRATION [None]
  - DIARRHOEA [None]
  - DIZZINESS [None]
  - DRY EYE [None]
  - DYSPNOEA [None]
  - DYSURIA [None]
  - ECONOMIC PROBLEM [None]
  - ESCHERICHIA INFECTION [None]
  - EYE INJURY [None]
  - EYE IRRITATION [None]
  - EYELIDS PRURITUS [None]
  - FATIGUE [None]
  - FOOT FRACTURE [None]
  - HYPERHIDROSIS [None]
  - HYPERTENSION [None]
  - HYPOTENSION [None]
  - ILL-DEFINED DISORDER [None]
  - INTRAOCULAR LENS IMPLANT [None]
  - IRITIS [None]
  - MALAISE [None]
  - MULTIPLE INJURIES [None]
  - MUSCLE SPASMS [None]
  - NAUSEA [None]
  - OCULAR DISCOMFORT [None]
  - PAIN [None]
  - PAIN IN EXTREMITY [None]
  - POLLAKIURIA [None]
  - PRESYNCOPE [None]
  - PROTEINURIA [None]
  - RALES [None]
  - RESIDUAL URINE [None]
  - STAPHYLOCOCCAL INFECTION [None]
  - SYNCOPE [None]
  - TENOSYNOVITIS [None]
  - THERAPEUTIC AGENT TOXICITY [None]
  - ULCERATIVE KERATITIS [None]
  - URINARY RETENTION [None]
  - URINE ODOUR ABNORMAL [None]
  - UVEITIS [None]
  - VIRAL INFECTION [None]
  - VISUAL ACUITY REDUCED [None]
  - VOMITING [None]
  - WHITE BLOOD CELL COUNT INCREASED [None]
